FAERS Safety Report 17739561 (Version 1)
Quarter: 2020Q2

REPORT INFORMATION
  Report Type: Spontaneous
  Country: US (occurrence: US)
  Receive Date: 20200501
  Receipt Date: 20200501
  Transmission Date: 20200714
  Serious: Yes (Hospitalization, Disabling, Other)
  Sender: FDA-Public Use
  Company Number: None

PATIENT
  Sex: Female
  Weight: 73.35 kg

DRUGS (13)
  1. PRAZOSIN. [Concomitant]
     Active Substance: PRAZOSIN
  2. VITAMIN A AND D [Concomitant]
     Active Substance: LANOLIN\PETROLATUM
  3. LINZESS [Suspect]
     Active Substance: LINACLOTIDE
     Indication: CONSTIPATION
     Dosage: ?          OTHER STRENGTH:MCG;QUANTITY:1 CAPSULE(S);?
     Route: 048
     Dates: start: 20140620, end: 20200227
  4. TRILEPTEL [Concomitant]
  5. VISTARIL [Concomitant]
     Active Substance: HYDROXYZINE PAMOATE
  6. BACLOFEN. [Concomitant]
     Active Substance: BACLOFEN
  7. PRILOSEC [Concomitant]
     Active Substance: OMEPRAZOLE MAGNESIUM
  8. TYLONAL [Concomitant]
  9. ZOFRAN ODT [Concomitant]
     Active Substance: ONDANSETRON HYDROCHLORIDE
  10. ALBUTERAL [Concomitant]
     Active Substance: ALBUTEROL
  11. LOPERAMIDE [Concomitant]
     Active Substance: LOPERAMIDE
  12. POTASSIUM CHLORIDE. [Concomitant]
     Active Substance: POTASSIUM CHLORIDE
  13. ATIVAN [Concomitant]
     Active Substance: LORAZEPAM

REACTIONS (5)
  - Incontinence [None]
  - Colitis [None]
  - Large intestine polyp [None]
  - Diverticulum [None]
  - Sepsis [None]
